FAERS Safety Report 20240353 (Version 1)
Quarter: 2021Q4

REPORT INFORMATION
  Report Type: Other
  Country: IT (occurrence: IT)
  Receive Date: 20211228
  Receipt Date: 20211228
  Transmission Date: 20220303
  Serious: Yes (Death, Hospitalization)
  Sender: FDA-Public Use
  Company Number: Genus_Lifesciences-USA_POI0580202100138

PATIENT
  Age: 73 Year
  Sex: Female

DRUGS (3)
  1. YOSPRALA [Suspect]
     Active Substance: ASPIRIN\OMEPRAZOLE
     Indication: Transient ischaemic attack
     Dates: start: 2018, end: 2021
  2. ATORVASTATIN [Concomitant]
     Active Substance: ATORVASTATIN
     Indication: Transient ischaemic attack
  3. VALSARTAN [Concomitant]
     Active Substance: VALSARTAN
     Indication: Transient ischaemic attack
     Dates: start: 2018, end: 2021

REACTIONS (1)
  - Acquired haemophilia [Fatal]

NARRATIVE: CASE EVENT DATE: 20210101
